FAERS Safety Report 8384798-6 (Version None)
Quarter: 2012Q2

REPORT INFORMATION
  Report Type: 
  Country: None (occurrence: None)
  Receive Date: 20120524
  Receipt Date: 20120517
  Transmission Date: 20120825
  Serious: No
  Sender: FDA-Public Use
  Company Number: US-ROCHE-GNE284512

PATIENT
  Sex: Female
  Weight: 84.444 kg

DRUGS (4)
  1. ALBUTEROL [Concomitant]
     Indication: ASTHMA
     Dosage: AS NEEDED
  2. SYMBICORT [Concomitant]
     Indication: ASTHMA
  3. OMALIZUMAB [Suspect]
     Indication: ASTHMA
     Route: 058
     Dates: start: 20060501
  4. PROVENTIL [Concomitant]
     Indication: ASTHMA

REACTIONS (6)
  - MASS [None]
  - PAIN [None]
  - ACNE [None]
  - SWELLING [None]
  - BREAST TENDERNESS [None]
  - BLISTER [None]
